FAERS Safety Report 21035635 (Version 1)
Quarter: 2022Q3

REPORT INFORMATION
  Report Type: Spontaneous
  Country: CN (occurrence: CN)
  Receive Date: 20220701
  Receipt Date: 20220701
  Transmission Date: 20221027
  Serious: Yes (Hospitalization)
  Sender: FDA-Public Use
  Company Number: CN-PFIZER INC-PV202200011515

PATIENT
  Age: 16 Month
  Sex: Male
  Weight: 15.5 kg

DRUGS (1)
  1. AZITHROMYCIN [Suspect]
     Active Substance: AZITHROMYCIN
     Indication: Bronchitis
     Dosage: 0.150 G, 1X/DAY
     Route: 048
     Dates: start: 20220621, end: 20220622

REACTIONS (3)
  - Rash [Recovered/Resolved]
  - Eyelid oedema [Recovered/Resolved]
  - Papule [Unknown]

NARRATIVE: CASE EVENT DATE: 20220622
